FAERS Safety Report 9736049 (Version 1)
Quarter: 2013Q4

REPORT INFORMATION
  Report Type: Spontaneous
  Country: US (occurrence: None)
  Receive Date: 20131205
  Receipt Date: 20131205
  Transmission Date: 20140711
  Serious: Yes (Hospitalization)
  Sender: FDA-Public Use
  Company Number: None

PATIENT
  Age: 51 Year
  Sex: Male
  Weight: 68.6 kg

DRUGS (2)
  1. CARBOPLATIN [Suspect]
  2. DOCETAXEL (TAXOTERE) [Suspect]

REACTIONS (2)
  - Pneumonia aspiration [None]
  - Febrile neutropenia [None]
